FAERS Safety Report 9949244 (Version 1)
Quarter: 2014Q1

REPORT INFORMATION
  Report Type: Spontaneous
  Country: CA (occurrence: CA)
  Receive Date: 20140304
  Receipt Date: 20140304
  Transmission Date: 20141002
  Serious: Yes (Death)
  Sender: FDA-Public Use
  Company Number: CA-JNJFOC-20140300001

PATIENT
  Age: 75 Year
  Sex: Female
  Weight: 50 kg

DRUGS (9)
  1. XARELTO [Suspect]
     Indication: PRODUCT USED FOR UNKNOWN INDICATION
     Route: 048
  2. DOMPERIDONE [Concomitant]
     Route: 065
  3. SENOKOT [Concomitant]
     Route: 065
  4. METHOTRIMEPRAZINE [Concomitant]
     Route: 065
  5. PANTOPRAZOLE [Concomitant]
     Route: 065
  6. PROCHLORPERAZINE [Concomitant]
     Route: 065
  7. GABAPENTIN [Concomitant]
     Route: 065
  8. FERROUS FUMARATE [Concomitant]
     Route: 065
  9. HYDROMORPHONE [Concomitant]
     Route: 065

REACTIONS (4)
  - Haemoglobin decreased [Fatal]
  - Haematemesis [Fatal]
  - Haemorrhage intracranial [Fatal]
  - International normalised ratio increased [Fatal]
